FAERS Safety Report 20010518 (Version 3)
Quarter: 2021Q4

REPORT INFORMATION
  Report Type: Spontaneous
  Country: US (occurrence: US)
  Receive Date: 20211029
  Receipt Date: 20211220
  Transmission Date: 20220304
  Serious: Yes (Hospitalization)
  Sender: FDA-Public Use
  Company Number: US-GILEAD-2021-0553155

PATIENT
  Age: 56 Year
  Sex: Male

DRUGS (9)
  1. EPCLUSA [Suspect]
     Active Substance: SOFOSBUVIR\VELPATASVIR
     Indication: Chronic hepatitis C
     Dosage: 1 DOSAGE FORM, QD
     Route: 048
     Dates: start: 20211006
  2. EPCLUSA [Suspect]
     Active Substance: SOFOSBUVIR\VELPATASVIR
     Dosage: 1 DOSAGE FORM, QD
     Route: 048
  3. RIBAVIRIN [Concomitant]
     Active Substance: RIBAVIRIN
  4. METFORMIN HYDROCHLORIDE [Concomitant]
     Active Substance: METFORMIN HYDROCHLORIDE
  5. AMLODIPINE BESYLATE [Concomitant]
     Active Substance: AMLODIPINE BESYLATE
  6. METHYLPREDNISOLONE [Concomitant]
     Active Substance: METHYLPREDNISOLONE
  7. TUMS [Concomitant]
     Active Substance: CALCIUM CARBONATE
  8. SUMATRIPTAN SUCCINATE [Concomitant]
     Active Substance: SUMATRIPTAN SUCCINATE
  9. CYCLOBENZAPRINE HYDROCHLORIDE [Concomitant]
     Active Substance: CYCLOBENZAPRINE HYDROCHLORIDE

REACTIONS (15)
  - Headache [Not Recovered/Not Resolved]
  - Feeling jittery [Not Recovered/Not Resolved]
  - Abdominal discomfort [Recovered/Resolved]
  - Speech disorder [Not Recovered/Not Resolved]
  - Confusional state [Not Recovered/Not Resolved]
  - Anxiety [Not Recovered/Not Resolved]
  - Palpitations [Recovered/Resolved]
  - Irritability [Not Recovered/Not Resolved]
  - Headache [Unknown]
  - Malaise [Unknown]
  - Product dose omission in error [Unknown]
  - Migraine [Unknown]
  - Rash [Unknown]
  - Nausea [Unknown]
  - Gastric disorder [Unknown]

NARRATIVE: CASE EVENT DATE: 20211021
